FAERS Safety Report 16534509 (Version 1)
Quarter: 2019Q3

REPORT INFORMATION
  Report Type: Spontaneous
  Country: DE (occurrence: DE)
  Receive Date: 20190705
  Receipt Date: 20190705
  Transmission Date: 20191004
  Serious: Yes (Death, Hospitalization, Other)
  Sender: FDA-Public Use
  Company Number: PHHY2019DE154872

PATIENT
  Age: 47 Year
  Sex: Female

DRUGS (28)
  1. VIMPAT [Suspect]
     Active Substance: LACOSAMIDE
     Indication: EPILEPSY
     Dosage: 900 MG, QD (300 MILLIGRAM, 3X/DAY (TID))
     Route: 065
     Dates: start: 201705
  2. BRIVIACT [Suspect]
     Active Substance: BRIVARACETAM
     Indication: EPILEPSY
     Dosage: 50 MG, QD (50 MG AND 25 MG, 2X/DAY (BID))
     Route: 065
     Dates: start: 20180316
  3. DIAZEPAM DESITIN [Concomitant]
     Indication: SEIZURE
     Dosage: 10 MG, UNK
     Route: 054
  4. TAVOR [Concomitant]
     Indication: SEIZURE
     Dosage: 2.5 MG, UNK
     Route: 002
  5. MELPERONE [Concomitant]
     Active Substance: MELPERONE
     Indication: PRODUCT USED FOR UNKNOWN INDICATION
     Dosage: UNK
     Route: 065
  6. OXCARBAZEPINE. [Concomitant]
     Active Substance: OXCARBAZEPINE
     Indication: PRODUCT USED FOR UNKNOWN INDICATION
     Dosage: UNK
     Route: 065
  7. LEVETIRACETAM. [Suspect]
     Active Substance: LEVETIRACETAM
     Indication: EPILEPSY
     Dosage: 3000 MG, QD
     Route: 065
  8. BRIVIACT [Suspect]
     Active Substance: BRIVARACETAM
     Dosage: 200 MG, QD (100 MILLIGRAM, 2X/DAY (BID))
     Route: 065
     Dates: start: 201803
  9. COLECALCIFEROL [Concomitant]
     Active Substance: CHOLECALCIFEROL
     Indication: PRODUCT USED FOR UNKNOWN INDICATION
     Dosage: UNK
     Route: 065
  10. BACLOFEN DURA [Concomitant]
     Indication: PRODUCT USED FOR UNKNOWN INDICATION
     Dosage: 30 MG, QD (10 MILLIGRAM, 3X/DAY (TID))
     Route: 065
  11. CHLORPROTHIXEN [Concomitant]
     Active Substance: CHLORPROTHIXENE HYDROCHLORIDE
     Indication: PRODUCT USED FOR UNKNOWN INDICATION
     Dosage: UNK, QD
     Route: 065
  12. VIMPAT [Suspect]
     Active Substance: LACOSAMIDE
     Dosage: 100 MG, QD (100 MG TABLET 2 IN MORNING 1 AT NOON AND 1 AT NIGHT)
     Route: 065
     Dates: start: 201803
  13. BRIVIACT [Suspect]
     Active Substance: BRIVARACETAM
     Dosage: 50 MG, QD (25 MILLIGRAM, 2X/DAY (BID))
     Route: 065
  14. BUCCOLAM [Concomitant]
     Active Substance: MIDAZOLAM HYDROCHLORIDE
     Indication: SEIZURE
     Dosage: 10 MG, UNK
     Route: 065
  15. DEKRISTOL [Concomitant]
     Active Substance: CHOLECALCIFEROL
     Indication: PRODUCT USED FOR UNKNOWN INDICATION
     Dosage: UNK, Q2W
     Route: 065
  16. PANTOPRAZOLE [Concomitant]
     Active Substance: PANTOPRAZOLE
     Indication: PRODUCT USED FOR UNKNOWN INDICATION
     Dosage: UNK
     Route: 065
  17. MIDAZOLAM [Concomitant]
     Active Substance: MIDAZOLAM HYDROCHLORIDE
     Indication: PRODUCT USED FOR UNKNOWN INDICATION
     Dosage: UNK
     Route: 065
  18. NOVAMINSULFON [Concomitant]
     Active Substance: METAMIZOLE
     Indication: PAIN
     Dosage: UNK, QD
     Route: 065
  19. FERROSANOL [Concomitant]
     Active Substance: FERROUS GLUCONATE
     Indication: PRODUCT USED FOR UNKNOWN INDICATION
     Dosage: UNK
     Route: 065
  20. DIAZEPAM. [Concomitant]
     Active Substance: DIAZEPAM
     Indication: PRODUCT USED FOR UNKNOWN INDICATION
     Dosage: UNK
     Route: 065
  21. DORMICUM [Concomitant]
     Indication: PAIN
     Dosage: 7.5 MG, UNK
     Route: 065
  22. VIMPAT [Suspect]
     Active Substance: LACOSAMIDE
     Dosage: 400 MG, QD
     Route: 065
  23. BRIVIACT [Suspect]
     Active Substance: BRIVARACETAM
     Dosage: 100 MG, QD (50 MILLIGRAM, 2X/DAY (BID))
     Route: 065
     Dates: start: 20180323
  24. PANTOZLE [Concomitant]
     Active Substance: PANTOPRAZOLE SODIUM
     Indication: PRODUCT USED FOR UNKNOWN INDICATION
     Dosage: 20 MG, QD (20 MILLIGRAM, ONCE DAILY (QD))
     Route: 065
  25. LEVETIRACETAM. [Suspect]
     Active Substance: LEVETIRACETAM
     Dosage: 2000 MG, QD
     Route: 065
  26. LEVETIRACETAM. [Suspect]
     Active Substance: LEVETIRACETAM
     Dosage: 1000 MG, QD (500 MILLIGRAM, 2X/DAY (BID))
     Route: 065
  27. VIMPAT [Suspect]
     Active Substance: LACOSAMIDE
     Dosage: 900 MG, QD (300 MILLIGRAM, 3X/DAY (TID))
     Route: 065
  28. DIENOVEL [Concomitant]
     Active Substance: DIENOGEST\ETHINYL ESTRADIOL
     Indication: PRODUCT USED FOR UNKNOWN INDICATION
     Dosage: UNK, QD
     Route: 065

REACTIONS (4)
  - Off label use [Unknown]
  - Partial seizures [Unknown]
  - Seizure [Fatal]
  - Drug ineffective [Unknown]

NARRATIVE: CASE EVENT DATE: 2018
